FAERS Safety Report 7918278-6 (Version None)
Quarter: 2011Q4

REPORT INFORMATION
  Report Type: 
  Country: None (occurrence: None)
  Receive Date: 20111116
  Receipt Date: 20111108
  Transmission Date: 20120403
  Serious: Yes (Other)
  Sender: FDA-Public Use
  Company Number: JP-GLAXOSMITHKLINE-B0761895A

PATIENT
  Sex: Male

DRUGS (3)
  1. VANCOMYCIN HYCHLORIDE [Concomitant]
     Route: 048
  2. VALTREX [Suspect]
     Indication: PRODUCT USED FOR UNKNOWN INDICATION
     Dosage: 1500MG PER DAY
     Route: 048
     Dates: start: 20111029, end: 20111029
  3. LOXONIN [Concomitant]
     Route: 048

REACTIONS (1)
  - BIPOLAR I DISORDER [None]
